FAERS Safety Report 17703299 (Version 1)
Quarter: 2020Q2

REPORT INFORMATION
  Report Type: Spontaneous
  Country: GB (occurrence: GB)
  Receive Date: 20200424
  Receipt Date: 20200424
  Transmission Date: 20200714
  Serious: Yes (Hospitalization)
  Sender: FDA-Public Use
  Company Number: GB-TEVA-2020-GB-1226328

PATIENT
  Age: 63 Year
  Sex: Female

DRUGS (23)
  1. PROPRANOLOL [Concomitant]
     Active Substance: PROPRANOLOL HYDROCHLORIDE
     Dosage: MR (ON), 80 MG
  2. DOXAZOSIN [Concomitant]
     Active Substance: DOXAZOSIN MESYLATE
     Indication: BLOOD PRESSURE ABNORMAL
     Dosage: OM, 6 MG
  3. DULOXETINE. [Concomitant]
     Active Substance: DULOXETINE
     Dosage: ON,120 MG
  4. CLARITHROMYCIN. [Suspect]
     Active Substance: CLARITHROMYCIN
     Dates: start: 20200329
  5. ALENDRONIC ACID [Concomitant]
     Active Substance: ALENDRONIC ACID
     Dosage: TO BE TAKEN ON THE SAME DAY EACH WEEK - WEDNESDAYS 70 MG 1 WEEKS
     Dates: end: 20191009
  6. METFORMIN [Concomitant]
     Active Substance: METFORMIN HYDROCHLORIDE
     Dosage: OM, 500 MG
  7. COCODAMOL [Concomitant]
     Active Substance: ACETAMINOPHEN\CODEINE PHOSPHATE
     Dosage: 30MG/500MG, ONE OR TWO TO BE TAKEN FOUR TIMES A DAY, TAKING 1-2
  8. METOJECT [Concomitant]
     Active Substance: METHOTREXATE SODIUM
     Dosage: 20MG/0.4ML, USUALLY ON THURSDAYS, NOT TAKEN FOR THE PAST 10 WEEKS WHILST BEING TREATED FOR INFECTION
     Route: 058
     Dates: start: 20190729
  9. ATORVASTATIN [Concomitant]
     Active Substance: ATORVASTATIN
     Dosage: 40 MILLIGRAM DAILY; TO BE TAKEN AT NIGHT, NOT TAKEN FOR PAST 5 DAYS AS STOPPED WHILST ON CLARITHROMY
  10. LEVEMIR [Concomitant]
     Active Substance: INSULIN DETEMIR
     Dosage: FLEXPEN, 100UNITS/ML , 3ML PRE-FILLED PEN - OM + ON, 108 IU
  11. ADCAL-D3 [Concomitant]
     Active Substance: CALCIUM CARBONATE\CHOLECALCIFEROL
     Indication: BONE DISORDER
     Dosage: OM AND ON, 2 DOSAGE FORMS
  12. DOXAZOSIN [Concomitant]
     Active Substance: DOXAZOSIN MESYLATE
     Indication: BLOOD PRESSURE ABNORMAL
     Dosage: OM, 4 MG
  13. ALLOPURINOL. [Concomitant]
     Active Substance: ALLOPURINOL
     Dosage: TO BE TAKEN AFTER FOOD (ON), 200 MG
  14. RAMIPRIL. [Concomitant]
     Active Substance: RAMIPRIL
     Dosage: ON, 10 MG
  15. FOLIC ACID. [Concomitant]
     Active Substance: FOLIC ACID
     Dosage: TAKE WHILE ON METHOTREXATE (BUT NOT ON THE SAME DAY) - TAKES FRIDAY TO TUESDAY, 25 MG 1 WEEKS
  16. LERCANIDIPINE [Concomitant]
     Active Substance: LERCANIDIPINE
     Dosage: OM, NOT TAKEN FOR PAST 5 DAYS AS STOPPED WHILST ON CLARITHROMYCIN, 20 MG
  17. ELTROXIN [Concomitant]
     Active Substance: LEVOTHYROXINE
     Dosage: TO BE TAKEN EACH MORNING AT LEAST 30 MINUTES BEFORE BREAKFAST (DAILY DOSE 250MCG), 200 MICROGRAM
  18. MOMETASONE [Concomitant]
     Active Substance: MOMETASONE
     Dosage: ONE SPRAY TO BE USED IN EACH NOSTRIL  - NOT USING, 100 MICROGRAM
     Dates: start: 20190729
  19. ELTROXIN [Concomitant]
     Active Substance: LEVOTHYROXINE
     Dosage: TO BE TAKEN EACH MORNING AT LEAST 30 MINUTES BEFORE BREAKFAST (DAILY DOSE 250MCG), 50 MICROGRAM
  20. OMEPRAZOLE. [Concomitant]
     Active Substance: OMEPRAZOLE
     Dosage: TO BE TAKEN EACH DAY IN EMPTY STOMACH (OM), 20 MG
  21. NOVORAPID [Concomitant]
     Active Substance: INSULIN ASPART
     Dosage: FLEXPEN 100UNITS/ML SOLUTION FOR INJECTION 3ML PRE-FILLED PEN -  MEALS,126 IU
  22. FLUCLOXACILLIN [Concomitant]
     Active Substance: FLUCLOXACILLIN
     Indication: OSTEOMYELITIS
  23. ACETYLSALICYLIC ACID [Concomitant]
     Active Substance: ASPIRIN
     Dosage: ON, 75 MG

REACTIONS (2)
  - Rash [Recovered/Resolved]
  - Blister [Unknown]
